FAERS Safety Report 23988475 (Version 1)
Quarter: 2024Q2

REPORT INFORMATION
  Report Type: Spontaneous
  Country: FR (occurrence: FR)
  Receive Date: 20240619
  Receipt Date: 20240619
  Transmission Date: 20240716
  Serious: Yes (Hospitalization, Other)
  Sender: FDA-Public Use
  Company Number: FR-CELLTRION INC.-2024FR014642

PATIENT

DRUGS (19)
  1. RITUXIMAB [Suspect]
     Active Substance: RITUXIMAB
     Indication: Epstein-Barr virus infection reactivation
     Dosage: 590 MG, 1/DAY
     Route: 042
     Dates: start: 20220903, end: 20220903
  2. RITUXIMAB [Suspect]
     Active Substance: RITUXIMAB
     Dosage: 590 MG, 1/DAY
     Route: 042
     Dates: start: 20220913, end: 20220913
  3. RITUXIMAB [Suspect]
     Active Substance: RITUXIMAB
     Dosage: 590 MG, 1/DAY
     Route: 042
     Dates: start: 20220920, end: 20220920
  4. RITUXIMAB [Suspect]
     Active Substance: RITUXIMAB
     Dosage: 590 MG, 1/DAY
     Route: 042
     Dates: start: 20220927, end: 20220927
  5. CELLCEPT [Suspect]
     Active Substance: MYCOPHENOLATE MOFETIL
     Indication: Prophylaxis against graft versus host disease
     Dosage: 2.5 G, 1/DAY
     Route: 048
     Dates: start: 20220905, end: 20221115
  6. LETERMOVIR [Suspect]
     Active Substance: LETERMOVIR
     Indication: Antiviral prophylaxis
     Dosage: 480 MG, 1/DAY
     Route: 048
     Dates: start: 20220920, end: 20221115
  7. PIPERACILLIN SODIUM\TAZOBACTAM SODIUM [Concomitant]
     Active Substance: PIPERACILLIN SODIUM\TAZOBACTAM SODIUM
     Indication: Appendicitis
     Dosage: 4 G, 6/HOUR
     Route: 042
     Dates: start: 20221008, end: 20221122
  8. NOXAFIL [Concomitant]
     Active Substance: POSACONAZOLE
     Indication: Antifungal prophylaxis
     Dosage: 7.5 MILLILITER, 8/HOUR
     Route: 048
     Dates: start: 20220905, end: 20221122
  9. AMINO ACIDS\DEXTROSE\ELECTROLYTES NOS\SOYBEAN OIL [Concomitant]
     Active Substance: AMINO ACIDS\DEXTROSE\ELECTROLYTES NOS\SOYBEAN OIL
     Indication: Parenteral nutrition
     Dosage: 1970 MILLILITER, 1/DAY
     Route: 042
     Dates: start: 20220905, end: 20221026
  10. ONDANSETRON [Concomitant]
     Active Substance: ONDANSETRON
     Indication: Antiemetic supportive care
     Dosage: 8 MG, 1/DAY
     Route: 048
  11. BACTRIM [Concomitant]
     Active Substance: SULFAMETHOXAZOLE\TRIMETHOPRIM
     Indication: Antifungal prophylaxis
     Dosage: 800 MG, 2/DAY
     Route: 048
     Dates: start: 20220728, end: 20221027
  12. BACTRIM [Concomitant]
     Active Substance: SULFAMETHOXAZOLE\TRIMETHOPRIM
     Dosage: 800 MG, 2/DAY
     Route: 048
     Dates: start: 20221102
  13. ACYCLOVIR [Concomitant]
     Active Substance: ACYCLOVIR
     Indication: Herpes ophthalmic
     Dosage: 500 MG, 8/HOUR
     Route: 042
     Dates: start: 20220930, end: 20221017
  14. PANTOPRAZOLE [Concomitant]
     Active Substance: PANTOPRAZOLE
     Indication: Prophylaxis against gastrointestinal ulcer
     Dosage: 40 MG, 1/DAY
     Route: 048
  15. PENICILLIN V BENZATHINE [Concomitant]
     Active Substance: PENICILLIN V BENZATHINE
     Indication: Antibiotic prophylaxis
     Dosage: 1 10*6.[IU], 12/HOUR
     Route: 048
     Dates: start: 20220728
  16. KARDEGIC [Concomitant]
     Active Substance: ASPIRIN DL-LYSINE
     Indication: Heart disease congenital
     Dosage: 75 MG, 1/DAY
     Route: 048
  17. FUROSEMIDE [Concomitant]
     Active Substance: FUROSEMIDE
     Indication: Heart disease congenital
     Dosage: 20 MG, 1/DAY
     Route: 048
  18. VALSARTAN [Concomitant]
     Active Substance: VALSARTAN
     Indication: Heart disease congenital
     Dosage: 40 MG, 1/DAY
     Route: 048
  19. FILGRASTIM [Concomitant]
     Active Substance: FILGRASTIM
     Indication: Agranulocytosis
     Dosage: 30 10*6.[IU], 1/DAY
     Route: 058
     Dates: start: 20221110, end: 20221114

REACTIONS (2)
  - Agranulocytosis [Recovered/Resolved]
  - Intentional product use issue [Unknown]

NARRATIVE: CASE EVENT DATE: 20221010
